FAERS Safety Report 17265466 (Version 1)
Quarter: 2020Q1

REPORT INFORMATION
  Report Type: Report from Study
  Country: GB (occurrence: GB)
  Receive Date: 20200114
  Receipt Date: 20200114
  Transmission Date: 20200409
  Serious: Yes (Hospitalization, Other)
  Sender: FDA-Public Use
  Company Number: GB-ROCHE-2514822

PATIENT
  Sex: Female

DRUGS (12)
  1. AMLODIPINE [Concomitant]
     Active Substance: AMLODIPINE BESYLATE
  2. FOLIC ACID. [Concomitant]
     Active Substance: FOLIC ACID
  3. ISMN [Concomitant]
     Active Substance: ISOSORBIDE MONONITRATE
  4. GTN [Concomitant]
     Active Substance: NITROGLYCERIN
     Route: 065
  5. CARBOCISTEINE [Concomitant]
     Active Substance: CARBOCYSTEINE
  6. OMEPRAZOLE. [Concomitant]
     Active Substance: OMEPRAZOLE
  7. ASPIRIN [ACETYLSALICYLIC ACID] [Concomitant]
     Active Substance: ASPIRIN
  8. ESBRIET [Suspect]
     Active Substance: PIRFENIDONE
     Indication: PRODUCT USED FOR UNKNOWN INDICATION
     Route: 065
     Dates: start: 20190730
  9. BETAHISTINE [Concomitant]
     Active Substance: BETAHISTINE
  10. CYCLIZINE [Concomitant]
     Active Substance: CYCLIZINE
  11. DOMPERIDONE [Concomitant]
     Active Substance: DOMPERIDONE
  12. IRON [Concomitant]
     Active Substance: IRON
     Route: 065

REACTIONS (7)
  - Epistaxis [Unknown]
  - Alopecia [Unknown]
  - Diarrhoea [Unknown]
  - Chromaturia [Unknown]
  - Rectal haemorrhage [Unknown]
  - Anaemia [Unknown]
  - Pruritus [Unknown]
